FAERS Safety Report 17918091 (Version 3)
Quarter: 2021Q2

REPORT INFORMATION
  Report Type: Spontaneous
  Country: FR (occurrence: FR)
  Receive Date: 20200619
  Receipt Date: 20210418
  Transmission Date: 20210717
  Serious: Yes (Death, Hospitalization, Other)
  Sender: FDA-Public Use
  Company Number: FR-ASTRAZENECA-2020SE78467

PATIENT
  Age: 68 Year
  Sex: Female

DRUGS (2)
  1. RADIATION THERAPY [Concomitant]
     Active Substance: RADIATION THERAPY
     Dates: start: 20200311, end: 20200415
  2. LYNPARZA [Suspect]
     Active Substance: OLAPARIB
     Indication: OVARIAN CANCER
     Route: 048
     Dates: start: 201808, end: 20200304

REACTIONS (12)
  - Arterial haemorrhage [Fatal]
  - Mass [Unknown]
  - Rectal haemorrhage [Fatal]
  - Nausea [Unknown]
  - Thrombosis [Unknown]
  - Gastrointestinal inflammation [Fatal]
  - Arterioenteric fistula [Fatal]
  - Diarrhoea [Unknown]
  - Malignant neoplasm progression [Unknown]
  - Carbohydrate antigen 125 increased [Unknown]
  - Metastases to lymph nodes [Unknown]
  - Shock haemorrhagic [Fatal]

NARRATIVE: CASE EVENT DATE: 202001
